FAERS Safety Report 21267726 (Version 3)
Quarter: 2022Q4

REPORT INFORMATION
  Report Type: Spontaneous
  Country: JP (occurrence: JP)
  Receive Date: 20220829
  Receipt Date: 20221229
  Transmission Date: 20230112
  Serious: Yes (Other)
  Sender: FDA-Public Use
  Company Number: JP-MSD-2208JPN003281JAA

PATIENT
  Age: 45 Year
  Sex: Female
  Weight: 52 kg

DRUGS (2)
  1. LAGEVRIO [Suspect]
     Active Substance: MOLNUPIRAVIR
     Indication: COVID-19 treatment
     Dosage: 800 MILLIGRAM, ONCE
     Route: 048
     Dates: start: 20220517, end: 20220517
  2. CALONAL [Suspect]
     Active Substance: ACETAMINOPHEN
     Indication: COVID-19 treatment
     Dosage: 500 MILLIGRAM, QD
     Route: 048
     Dates: start: 20220517, end: 20220518

REACTIONS (2)
  - Bradycardia [Recovering/Resolving]
  - Dizziness postural [Unknown]

NARRATIVE: CASE EVENT DATE: 20220518
